FAERS Safety Report 18071628 (Version 5)
Quarter: 2021Q3

REPORT INFORMATION
  Report Type: Spontaneous
  Country: US (occurrence: US)
  Receive Date: 20200727
  Receipt Date: 20210915
  Transmission Date: 20211014
  Serious: No
  Sender: FDA-Public Use
  Company Number: US-BIOGEN-2020BI00895840

PATIENT
  Age: 66 Year
  Sex: Female

DRUGS (38)
  1. AVONEX [Suspect]
     Active Substance: INTERFERON BETA-1A
  2. AVONEX [Suspect]
     Active Substance: INTERFERON BETA-1A
  3. ASPIRIN. [Suspect]
     Active Substance: ASPIRIN
     Indication: HEADACHE
     Route: 065
  4. GABAPENTIN. [Concomitant]
     Active Substance: GABAPENTIN
     Route: 065
  5. OMEPRAZOLE. [Concomitant]
     Active Substance: OMEPRAZOLE
     Route: 065
  6. OMEPRAZOLE. [Concomitant]
     Active Substance: OMEPRAZOLE
     Route: 065
  7. AVONEX [Suspect]
     Active Substance: INTERFERON BETA-1A
  8. AVONEX [Suspect]
     Active Substance: INTERFERON BETA-1A
  9. AVONEX [Suspect]
     Active Substance: INTERFERON BETA-1A
  10. MOBIC [Concomitant]
     Active Substance: MELOXICAM
     Route: 065
  11. XANAX [Concomitant]
     Active Substance: ALPRAZOLAM
     Indication: SLEEP DISORDER
     Route: 065
  12. PROAIR HFA [Concomitant]
     Active Substance: ALBUTEROL SULFATE
     Route: 065
  13. RESTASIS [Concomitant]
     Active Substance: CYCLOSPORINE
     Route: 065
  14. AVONEX [Suspect]
     Active Substance: INTERFERON BETA-1A
  15. CARISOPRODOL. [Concomitant]
     Active Substance: CARISOPRODOL
     Route: 065
  16. AVONEX [Suspect]
     Active Substance: INTERFERON BETA-1A
     Indication: MULTIPLE SCLEROSIS
     Route: 065
     Dates: start: 20190801, end: 20200709
  17. AVONEX [Suspect]
     Active Substance: INTERFERON BETA-1A
  18. AVONEX [Suspect]
     Active Substance: INTERFERON BETA-1A
  19. TIZANIDINE. [Concomitant]
     Active Substance: TIZANIDINE
     Route: 065
  20. BUSPAR [Concomitant]
     Active Substance: BUSPIRONE HYDROCHLORIDE
     Indication: MOOD SWINGS
     Route: 065
  21. AMITRIPTYLIN [Concomitant]
     Active Substance: AMITRIPTYLINE
     Route: 065
  22. CARISOPRODOL. [Concomitant]
     Active Substance: CARISOPRODOL
     Route: 065
  23. CLONAZEPAM. [Concomitant]
     Active Substance: CLONAZEPAM
     Route: 065
  24. MYRBETRIQ [Concomitant]
     Active Substance: MIRABEGRON
     Route: 065
  25. AVONEX [Suspect]
     Active Substance: INTERFERON BETA-1A
  26. LEXAPRO [Concomitant]
     Active Substance: ESCITALOPRAM OXALATE
     Route: 065
  27. KLONOPIN [Concomitant]
     Active Substance: CLONAZEPAM
     Indication: SLEEP DISORDER
     Route: 065
  28. ELAVIL [Concomitant]
     Active Substance: AMITRIPTYLINE HYDROCHLORIDE
     Route: 065
  29. AVONEX [Suspect]
     Active Substance: INTERFERON BETA-1A
  30. AVONEX [Suspect]
     Active Substance: INTERFERON BETA-1A
  31. LISINOPRIL. [Concomitant]
     Active Substance: LISINOPRIL
     Route: 065
  32. AMITRIPTYLIN [Concomitant]
     Active Substance: AMITRIPTYLINE
     Route: 065
  33. OLOPATADINE. [Concomitant]
     Active Substance: OLOPATADINE
     Route: 065
  34. RESTASIS [Concomitant]
     Active Substance: CYCLOSPORINE
     Route: 065
  35. AVONEX [Suspect]
     Active Substance: INTERFERON BETA-1A
  36. CLONAZEPAM. [Concomitant]
     Active Substance: CLONAZEPAM
     Route: 065
  37. MYRBETRIQ [Concomitant]
     Active Substance: MIRABEGRON
     Route: 065
  38. OLOPATADINE. [Concomitant]
     Active Substance: OLOPATADINE
     Route: 065

REACTIONS (23)
  - Injection site bruising [Not Recovered/Not Resolved]
  - Insomnia [Not Recovered/Not Resolved]
  - Blood viscosity decreased [Not Recovered/Not Resolved]
  - Injection site laceration [Recovered/Resolved]
  - Injection site pain [Recovered/Resolved]
  - Bursitis [Unknown]
  - Osteoarthritis [Unknown]
  - Skin atrophy [Unknown]
  - Arthritis [Unknown]
  - Fall [Recovered/Resolved]
  - Hallucination [Recovered/Resolved]
  - Nausea [Unknown]
  - Electroencephalogram abnormal [Unknown]
  - Facial paralysis [Unknown]
  - Therapeutic product effect decreased [Unknown]
  - Multiple sclerosis [Unknown]
  - Injection site haemorrhage [Recovered/Resolved]
  - Intervertebral disc protrusion [Unknown]
  - Mononeuropathy [Unknown]
  - Cerebral small vessel ischaemic disease [Unknown]
  - Feeling abnormal [Recovered/Resolved]
  - Contusion [Not Recovered/Not Resolved]
  - Cerebral atrophy [Unknown]

NARRATIVE: CASE EVENT DATE: 20191008
